FAERS Safety Report 14456371 (Version 1)
Quarter: 2018Q1

REPORT INFORMATION
  Report Type: Spontaneous
  Country: US (occurrence: US)
  Receive Date: 20180130
  Receipt Date: 20180130
  Transmission Date: 20180509
  Serious: Yes (Other)
  Sender: FDA-Public Use
  Company Number: US-TEVA-2018-US-853448

PATIENT
  Age: 68 Year

DRUGS (1)
  1. CLONIDINE. [Suspect]
     Active Substance: CLONIDINE
     Indication: BLOOD PRESSURE MEASUREMENT
     Dosage: .2 MILLIGRAM DAILY; ONE WEEK
     Route: 065
     Dates: start: 201708

REACTIONS (1)
  - Hypertension [Unknown]
